FAERS Safety Report 5956514-6 (Version None)
Quarter: 2008Q4

REPORT INFORMATION
  Report Type: 
  Country: None (occurrence: None)
  Receive Date: 20081118
  Receipt Date: 20081113
  Transmission Date: 20090506
  Serious: Yes (Hospitalization)
  Sender: FDA-Public Use
  Company Number: B0539037A

PATIENT
  Age: 78 Year
  Sex: Female
  Weight: 55 kg

DRUGS (8)
  1. VALTREX [Suspect]
     Indication: HERPES ZOSTER
     Dosage: 1000MG THREE TIMES PER DAY
     Route: 048
     Dates: start: 20080912, end: 20080917
  2. ZOVIRAX [Suspect]
     Indication: DRUG USE FOR UNKNOWN INDICATION
     Dosage: 250MG THREE TIMES PER DAY
     Route: 042
     Dates: start: 20080918, end: 20080918
  3. ZOVIRAX [Suspect]
     Dosage: 250MG PER DAY
     Route: 042
     Dates: start: 20080919, end: 20080919
  4. DIOVAN [Concomitant]
     Dosage: 80MG PER DAY
     Route: 048
     Dates: start: 20080919
  5. LIVALO [Concomitant]
     Dosage: 1MG PER DAY
     Route: 048
     Dates: start: 20080919
  6. SELOKEN [Concomitant]
     Dosage: 20MG PER DAY
     Route: 048
     Dates: start: 20080919
  7. VASOLAN [Concomitant]
     Dosage: 120MG PER DAY
     Route: 048
     Dates: start: 20080919
  8. LOXONIN [Concomitant]
     Dosage: 180MG PER DAY
     Route: 048
     Dates: start: 20080919

REACTIONS (3)
  - FACIAL PAIN [None]
  - RASH [None]
  - RENAL FAILURE ACUTE [None]
